FAERS Safety Report 7623027-5 (Version None)
Quarter: 2011Q3

REPORT INFORMATION
  Report Type: 
  Country: None (occurrence: None)
  Receive Date: 20110720
  Receipt Date: 20110712
  Transmission Date: 20111222
  Serious: Yes (Other)
  Sender: FDA-Public Use
  Company Number: JP-BAXTER-2011BH023176

PATIENT
  Age: 61 Year
  Sex: Female

DRUGS (35)
  1. PACLITAXEL [Suspect]
     Indication: PRODUCT USED FOR UNKNOWN INDICATION
     Route: 065
  2. OXYCONTIN [Concomitant]
     Route: 048
     Dates: start: 20110302, end: 20110415
  3. LOXONIN [Concomitant]
     Indication: CANCER PAIN
     Route: 048
     Dates: end: 20110206
  4. VOLTAREN [Concomitant]
     Indication: CANCER PAIN
     Route: 048
     Dates: start: 20110207
  5. MEDICON [Concomitant]
     Indication: PRODUCT USED FOR UNKNOWN INDICATION
     Route: 048
     Dates: start: 20110216
  6. OXYCONTIN [Concomitant]
     Route: 048
     Dates: start: 20110221, end: 20110301
  7. OXYCONTIN [Concomitant]
     Route: 048
     Dates: start: 20110416, end: 20110429
  8. CALCICOL [Concomitant]
     Indication: PRODUCT USED FOR UNKNOWN INDICATION
     Route: 065
     Dates: start: 20110221, end: 20110221
  9. EPIRUBICIN HYDROCHLORIDE [Suspect]
     Indication: BREAST CANCER
     Route: 065
     Dates: start: 20110120, end: 20110120
  10. LENDORMIN [Concomitant]
     Indication: PRODUCT USED FOR UNKNOWN INDICATION
     Route: 048
  11. CALCIUM POLYSTYRENE SULFONATE [Concomitant]
     Indication: PRODUCT USED FOR UNKNOWN INDICATION
     Route: 048
     Dates: start: 20110221
  12. PREGABALIN [Concomitant]
     Indication: CANCER PAIN
     Route: 048
     Dates: start: 20110223, end: 20110223
  13. LEVOFLOXACIN [Concomitant]
     Indication: RESPIRATORY TRACT INFECTION
     Route: 048
     Dates: start: 20110303, end: 20110303
  14. FEMARA [Concomitant]
     Indication: BREAST CANCER
     Route: 048
     Dates: start: 20110324
  15. DEXAMETHASONE [Concomitant]
     Indication: BREAST CANCER
     Route: 048
     Dates: start: 20110407
  16. CYCLOPHOSPHAMIDE [Suspect]
     Indication: BREAST CANCER
     Route: 065
     Dates: start: 20110120, end: 20110120
  17. MAGNESIUM OXIDE [Concomitant]
     Indication: PRODUCT USED FOR UNKNOWN INDICATION
     Route: 048
  18. ZOMETA [Concomitant]
     Indication: BREAST CANCER
     Route: 065
     Dates: start: 20110217, end: 20110217
  19. GRAN [Concomitant]
     Indication: LEUKOPENIA
     Route: 065
     Dates: start: 20110414, end: 20110427
  20. MUCOSTA [Concomitant]
     Indication: PRODUCT USED FOR UNKNOWN INDICATION
     Route: 048
  21. LANSOPRAZOLE [Concomitant]
     Indication: PRODUCT USED FOR UNKNOWN INDICATION
     Route: 048
     Dates: start: 20110318
  22. OXYCONTIN [Concomitant]
     Indication: CANCER PAIN
     Route: 048
     Dates: start: 20110206, end: 20110206
  23. AMLODIPINE BESYLATE [Concomitant]
     Indication: PRODUCT USED FOR UNKNOWN INDICATION
     Route: 065
     Dates: start: 20110212
  24. ADJUST-A [Concomitant]
     Indication: PRODUCT USED FOR UNKNOWN INDICATION
     Route: 048
  25. CEFTAZIDIME SODIUM [Concomitant]
     Indication: SEPSIS
     Route: 065
     Dates: start: 20110414, end: 20110419
  26. FERROUS CITRATE [Concomitant]
     Indication: PRODUCT USED FOR UNKNOWN INDICATION
     Route: 048
     Dates: start: 20110314, end: 20110314
  27. FLUOROURACIL [Suspect]
     Indication: BREAST CANCER
     Route: 065
     Dates: start: 20110120, end: 20110120
  28. OXYCONTIN [Concomitant]
     Route: 048
     Dates: start: 20110207, end: 20110210
  29. OXYCONTIN [Concomitant]
     Route: 048
     Dates: start: 20110430
  30. OXINORM [Concomitant]
     Indication: CANCER PAIN
     Route: 048
     Dates: start: 20110206, end: 20110210
  31. CANDESARTAN CILEXETIL [Concomitant]
     Indication: PRODUCT USED FOR UNKNOWN INDICATION
     Route: 048
     Dates: start: 20110208
  32. OXYCONTIN [Concomitant]
     Route: 048
     Dates: start: 20110211, end: 20110220
  33. OXINORM [Concomitant]
     Route: 048
     Dates: start: 20110211, end: 20110503
  34. HUMULIN R [Concomitant]
     Indication: PRODUCT USED FOR UNKNOWN INDICATION
     Route: 065
     Dates: start: 20110209
  35. NEUTROGIN [Concomitant]
     Indication: BREAST CANCER
     Route: 065
     Dates: start: 20110127, end: 20110202

REACTIONS (3)
  - SEPSIS [None]
  - LEUKOPENIA [None]
  - RESPIRATORY TRACT INFECTION [None]
